FAERS Safety Report 7256223-X (Version None)
Quarter: 2011Q1

REPORT INFORMATION
  Report Type: 
  Country: None (occurrence: None)
  Receive Date: 20110129
  Receipt Date: 20100518
  Transmission Date: 20110831
  Serious: No
  Sender: FDA-Public Use
  Company Number: US-ABBOTT-10P-163-0645888-00

PATIENT
  Sex: Female
  Weight: 59.928 kg

DRUGS (12)
  1. CELEBREX [Concomitant]
     Indication: ANKYLOSING SPONDYLITIS
     Route: 048
  2. CALCIUM WITH VITAMIN D [Concomitant]
     Indication: MINERAL SUPPLEMENTATION
     Dosage: NOT CONSISTENT USE/ DAILY
     Route: 048
  3. LEUTINE [Concomitant]
     Indication: SUPPLEMENTATION THERAPY
     Route: 048
  4. HA JOINT [Concomitant]
     Indication: SUPPLEMENTATION THERAPY
     Route: 048
     Dates: start: 20100506
  5. PAPADAY [Concomitant]
     Indication: EYE PRURITUS
     Route: 047
  6. MEIJER BRAND ORAL ALLERGY MEDICATION [Concomitant]
     Indication: SEASONAL ALLERGY
     Dosage: DAILY AS NEEDED
     Route: 048
  7. HUMIRA [Suspect]
     Indication: ANKYLOSING SPONDYLITIS
     Route: 058
     Dates: start: 20090301
  8. MULTI-VITAMIN [Concomitant]
     Indication: VITAMIN SUPPLEMENTATION
     Dosage: NOT CONSISTENT USE/ DAILY
     Route: 048
  9. PAPADAY [Concomitant]
     Indication: SEASONAL ALLERGY
  10. FIBER CHOICE [Concomitant]
     Indication: SUPPLEMENTATION THERAPY
     Route: 048
  11. NUVARING [Concomitant]
     Indication: CONTRACEPTION
     Route: 067
     Dates: start: 20050101
  12. LYSINE [Concomitant]
     Indication: SUPPLEMENTATION THERAPY
     Route: 048

REACTIONS (1)
  - INJECTION SITE HAEMATOMA [None]
